FAERS Safety Report 9645235 (Version 1)
Quarter: 2013Q4

REPORT INFORMATION
  Report Type: Spontaneous
  Country: US (occurrence: None)
  Receive Date: 20131023
  Receipt Date: 20131023
  Transmission Date: 20140711
  Serious: Yes (Disabling)
  Sender: FDA-Public Use
  Company Number: None

PATIENT
  Age: 65 Year
  Sex: Female
  Weight: 53.52 kg

DRUGS (11)
  1. BOTOX ALLERGAN BOTULINUM TOXIN TYPE-A (NEUROTOXIN) ALLERGAN [Suspect]
     Indication: MIGRAINE
     Dates: start: 20130829, end: 20130829
  2. BOTOX ALLERGAN BOTULINUM TOXIN TYPE-A (NEUROTOXIN) ALLERGAN [Suspect]
     Indication: TORTICOLLIS
     Dates: start: 20130829, end: 20130829
  3. TOPOMAX [Concomitant]
  4. SYNTHROID [Concomitant]
  5. ATIVAN [Concomitant]
  6. FIORCET PRN [Concomitant]
  7. RIZATRIPTAN PRN [Concomitant]
  8. AMITRIPTYLINE [Concomitant]
  9. SKELAXIN PRN [Concomitant]
  10. TYLENOL PRN [Concomitant]
  11. ALLEGRA PRN [Concomitant]

REACTIONS (6)
  - Neck pain [None]
  - Musculoskeletal pain [None]
  - Injection site pain [None]
  - Muscle spasms [None]
  - Nervousness [None]
  - Migraine [None]
